FAERS Safety Report 8250467-6 (Version None)
Quarter: 2012Q2

REPORT INFORMATION
  Report Type: 
  Country: None (occurrence: None)
  Receive Date: 20120402
  Receipt Date: 20120402
  Transmission Date: 20120825
  Serious: Yes (Life-Threatening)
  Sender: FDA-Public Use
  Company Number: None

PATIENT
  Age: 38 Year
  Sex: Female
  Weight: 59.874 kg

DRUGS (1)
  1. CYMBALTA [Suspect]
     Indication: ANXIETY
     Dates: start: 20111201, end: 20120330

REACTIONS (3)
  - DRUG WITHDRAWAL SYNDROME [None]
  - DIZZINESS [None]
  - GASTROINTESTINAL DISORDER [None]
